FAERS Safety Report 8765594 (Version 1)
Quarter: 2012Q4

REPORT INFORMATION
  Report Type: 
  Country: US (occurrence: US)
  Receive Date: 20120903
  Receipt Date: 20120903
  Transmission Date: 20130627
  Serious: No
  Sender: FDA-Public Use
  Company Number: US-ROXANE LABORATORIES, INC.-2012-RO-01708RO

PATIENT
  Sex: Male

DRUGS (1)
  1. CLOTRIMAZOLE TROCHE (CLOTRIMAZOLE LOZENGE) [Suspect]
     Indication: TONGUE COATED
     Dosage: 50 mg
     Route: 048
     Dates: start: 20120725

REACTIONS (2)
  - Blood cholesterol increased [Not Recovered/Not Resolved]
  - Urinary casts [Not Recovered/Not Resolved]
